FAERS Safety Report 24346608 (Version 1)
Quarter: 2024Q3

REPORT INFORMATION
  Report Type: Spontaneous
  Country: US (occurrence: US)
  Receive Date: 20240921
  Receipt Date: 20240921
  Transmission Date: 20241017
  Serious: No
  Sender: Haleon PLC
  Company Number: US-HALEON-2197553

PATIENT
  Age: 92 Year

DRUGS (1)
  1. NICORETTE CINNAMON SURGE [Suspect]
     Active Substance: NICOTINE
     Indication: Nicotine dependence
     Dosage: EXPDATE:202701, 1 - UNITS (UNT), CHEW 2-3 PER DAY
     Route: 048

REACTIONS (1)
  - Drug ineffective [Unknown]
